FAERS Safety Report 25487167 (Version 1)
Quarter: 2025Q2

REPORT INFORMATION
  Report Type: Spontaneous
  Country: US (occurrence: US)
  Receive Date: 20250627
  Receipt Date: 20250627
  Transmission Date: 20250717
  Serious: No
  Sender: NOBELPHARMA AMERICA, LLC
  Company Number: US-Nobelpharma America, LLC-NPA-2025-01056

PATIENT
  Age: 61 Year
  Sex: Female

DRUGS (5)
  1. HYFTOR [Suspect]
     Active Substance: SIROLIMUS
     Indication: Tuberous sclerosis complex
     Route: 061
     Dates: start: 20250520
  2. MELOXICAM [Concomitant]
     Active Substance: MELOXICAM
  3. MELATONIN [Concomitant]
     Active Substance: MELATONIN
  4. VITAMINS [Concomitant]
     Active Substance: VITAMINS
  5. FLUOXETINE [Concomitant]
     Active Substance: FLUOXETINE HYDROCHLORIDE

REACTIONS (1)
  - Dry skin [Unknown]
